FAERS Safety Report 23668702 (Version 2)
Quarter: 2024Q1

REPORT INFORMATION
  Report Type: Spontaneous
  Country: IN (occurrence: IN)
  Receive Date: 20240325
  Receipt Date: 20240327
  Transmission Date: 20240409
  Serious: Yes (Hospitalization, Other)
  Sender: FDA-Public Use
  Company Number: IN-MLMSERVICE-20240314-4883802-1

PATIENT
  Age: 23 Year
  Sex: Male
  Weight: 53 kg

DRUGS (5)
  1. DOXORUBICIN HYDROCHLORIDE [Suspect]
     Active Substance: DOXORUBICIN HYDROCHLORIDE
     Indication: Pseudomyxoma peritonei
     Dosage: 23.5 MG, SINGLE(HYPERTHERMIC INTRAPERITONEAL CHEMOTHERAPY)
     Route: 033
  2. DOXORUBICIN HYDROCHLORIDE [Suspect]
     Active Substance: DOXORUBICIN HYDROCHLORIDE
     Indication: Appendix cancer
  3. MITOMYCIN C [Suspect]
     Active Substance: MITOMYCIN
     Indication: Appendix cancer
     Dosage: 23.5 MG, SINGLE(HYPERTHERMIC INTRAPERITONEAL CHEMOTHERAPY)
     Route: 033
  4. MITOMYCIN C [Suspect]
     Active Substance: MITOMYCIN
     Indication: Pseudomyxoma peritonei
  5. NOREPINEPHRINE [Suspect]
     Active Substance: NOREPINEPHRINE\NOREPINEPHRINE BITARTRATE
     Indication: Vasopressive therapy
     Dosage: WENT UP TO 0.8 UG/KG/MIN/USE OF HIGH DOSES OF VASOPRESSORS

REACTIONS (3)
  - Hyperammonaemia [Unknown]
  - Hyperbilirubinaemia [Recovering/Resolving]
  - Ischaemic hepatitis [Recovering/Resolving]
